FAERS Safety Report 5650198-2 (Version None)
Quarter: 2008Q1

REPORT INFORMATION
  Report Type: 
  Country: None (occurrence: None)
  Receive Date: 20080131
  Receipt Date: 20071220
  Transmission Date: 20080703
  Serious: No
  Sender: FDA-Public Use
  Company Number: US200712004876

PATIENT
  Age: 71 Year
  Sex: Female
  Weight: 89.8 kg

DRUGS (3)
  1. BYETTA [Suspect]
     Indication: TYPE 2 DIABETES MELLITUS
     Dosage: 10 UG, 2/D, SUBCUTANEOUS
     Route: 058
     Dates: start: 20070601
  2. GLIPIZIDE [Concomitant]
  3. AVANDIA [Concomitant]

REACTIONS (8)
  - ABDOMINAL DISTENSION [None]
  - DRUG INEFFECTIVE [None]
  - FEELING JITTERY [None]
  - FLATULENCE [None]
  - NAUSEA [None]
  - RETCHING [None]
  - VOMITING [None]
  - WEIGHT INCREASED [None]
